FAERS Safety Report 24745868 (Version 4)
Quarter: 2025Q1

REPORT INFORMATION
  Report Type: Spontaneous
  Country: US (occurrence: US)
  Receive Date: 20241218
  Receipt Date: 20250109
  Transmission Date: 20250409
  Serious: No
  Sender: SANOFI AVENTIS
  Company Number: US-SANOFI-02340303

PATIENT
  Age: 52 Year
  Sex: Female

DRUGS (2)
  1. LANTUS SOLOSTAR [Suspect]
     Active Substance: INSULIN GLARGINE
     Indication: Type 2 diabetes mellitus
     Dosage: UNK UNK, BID
  2. LANTUS SOLOSTAR [Suspect]
     Active Substance: INSULIN GLARGINE
     Dosage: 30 UNITS IN THE MORNING AND 20 UNITS AT NIGHT

REACTIONS (4)
  - Injection site pain [Unknown]
  - Wrong technique in product usage process [Unknown]
  - Device issue [Unknown]
  - Off label use [Unknown]

NARRATIVE: CASE EVENT DATE: 20241212
